FAERS Safety Report 16767476 (Version 1)
Quarter: 2019Q3

REPORT INFORMATION
  Report Type: Spontaneous
  Country: US (occurrence: US)
  Receive Date: 20190903
  Receipt Date: 20190903
  Transmission Date: 20191005
  Serious: Yes (Other)
  Sender: FDA-Public Use
  Company Number: US-HIKMA PHARMACEUTICALS USA INC.-US-H14001-19-04606

PATIENT
  Sex: Male

DRUGS (1)
  1. FLUTICASONE PROPIONATE. [Suspect]
     Active Substance: FLUTICASONE PROPIONATE
     Indication: HYPERSENSITIVITY
     Dosage: TWO SPRAYS IN EACH NOSTRIL ONCE DAILY
     Route: 045
     Dates: start: 20190803, end: 20190805

REACTIONS (4)
  - Rhinorrhoea [Not Recovered/Not Resolved]
  - Nasal mucosal ulcer [Recovered/Resolved]
  - Sinusitis [Recovering/Resolving]
  - Nasal discomfort [Recovered/Resolved]

NARRATIVE: CASE EVENT DATE: 201908
